APPROVED DRUG PRODUCT: OXYMORPHONE HYDROCHLORIDE
Active Ingredient: OXYMORPHONE HYDROCHLORIDE
Strength: 10MG
Dosage Form/Route: TABLET, EXTENDED RELEASE;ORAL
Application: A079087 | Product #003
Applicant: IMPAX LABORATORIES INC
Approved: Jun 14, 2010 | RLD: No | RS: No | Type: RX